FAERS Safety Report 8052749-X (Version None)
Quarter: 2012Q1

REPORT INFORMATION
  Report Type: 
  Country: None (occurrence: None)
  Receive Date: 20120117
  Receipt Date: 20120117
  Transmission Date: 20120608
  Serious: Yes (Hospitalization)
  Sender: FDA-Public Use
  Company Number: None

PATIENT
  Age: 60 Year
  Sex: Male
  Weight: 93.7 kg

DRUGS (2)
  1. BOCEPREVIR [Suspect]
     Dosage: 800 MG TID PO
     Route: 048
     Dates: start: 20111207, end: 20111213
  2. RIBAVIRIN [Suspect]
     Dosage: 1400 MG EVERY DAY PO
     Route: 048
     Dates: start: 20111109, end: 20111213

REACTIONS (2)
  - CONFUSIONAL STATE [None]
  - ANAEMIA [None]
